FAERS Safety Report 5828064-9 (Version None)
Quarter: 2008Q3

REPORT INFORMATION
  Report Type: 
  Country: None (occurrence: None)
  Receive Date: 20080730
  Receipt Date: 20080410
  Transmission Date: 20090109
  Serious: No
  Sender: FDA-Public Use
  Company Number: A0722148A

PATIENT
  Sex: Female

DRUGS (2)
  1. RANITIDINE HCL [Suspect]
     Route: 048
  2. UNKNOWN [Concomitant]

REACTIONS (2)
  - DRUG EXPOSURE DURING PREGNANCY [None]
  - DRUG SCREEN FALSE POSITIVE [None]
